FAERS Safety Report 16554954 (Version 3)
Quarter: 2019Q3

REPORT INFORMATION
  Report Type: Report from Study
  Country: AU (occurrence: AU)
  Receive Date: 20190710
  Receipt Date: 20190918
  Transmission Date: 20191004
  Serious: Yes (Death, Other)
  Sender: FDA-Public Use
  Company Number: AU-PFIZER INC-2019285687

PATIENT
  Age: 79 Year
  Sex: Female
  Weight: 74.15 kg

DRUGS (13)
  1. LORATADINE. [Concomitant]
     Active Substance: LORATADINE
     Dosage: UNK
     Dates: start: 20190605, end: 20190621
  2. AZACITIDINE. [Suspect]
     Active Substance: AZACITIDINE
     Indication: ACUTE MYELOID LEUKAEMIA
     Dosage: 140 MG, DAILY FOR 7 DAYS (POWDER FOR SUSPENSION FOR INJECTION)
     Route: 058
     Dates: start: 20190612, end: 20190618
  3. OMEPRAZOLE. [Concomitant]
     Active Substance: OMEPRAZOLE
     Dosage: UNK
  4. ALLOPURINOL. [Concomitant]
     Active Substance: ALLOPURINOL
     Indication: GOUT
     Dosage: UNK
  5. MAGNESIUM ASPARTATE [Concomitant]
     Active Substance: MAGNESIUM ASPARTATE
     Dosage: UNK
     Dates: start: 20190531
  6. COLECALCIFEROL [Concomitant]
     Active Substance: CHOLECALCIFEROL
     Indication: VITAMIN D DEFICIENCY
     Dosage: UNK
  7. MOVICOL [Concomitant]
     Active Substance: POLYETHYLENE GLYCOL 3350\POTASSIUM CHLORIDE\SODIUM BICARBONATE\SODIUM CHLORIDE
     Dosage: UNK
     Dates: start: 20190531
  8. LEVOTHYROXINE SODIUM. [Concomitant]
     Active Substance: LEVOTHYROXINE SODIUM
     Dosage: UNK
  9. TRANEXAMIC ACID. [Suspect]
     Active Substance: TRANEXAMIC ACID
     Indication: THROMBOCYTOPENIA
     Dosage: 500 MG, 3X/DAY
     Route: 048
     Dates: start: 20190617, end: 20190628
  10. BLINDED GLASDEGIB [Suspect]
     Active Substance: GLASDEGIB
     Indication: ACUTE MYELOID LEUKAEMIA
     Dosage: UNK UNK, ONCE DAILY CONTINUOUS
     Route: 048
     Dates: start: 20190612
  11. BLINDED PF-04449913 [Suspect]
     Active Substance: GLASDEGIB
     Indication: ACUTE MYELOID LEUKAEMIA
     Dosage: UNK UNK, ONCE DAILY CONTINUOUS
     Route: 048
     Dates: start: 20190612
  12. BLINDED PLACEBO [Suspect]
     Active Substance: INVESTIGATIONAL PRODUCT
     Indication: ACUTE MYELOID LEUKAEMIA
     Dosage: UNK UNK, ONCE DAILY CONTINUOUS
     Route: 048
     Dates: start: 20190612
  13. HYDROCORTISONE. [Concomitant]
     Active Substance: HYDROCORTISONE
     Indication: PROPHYLAXIS
     Dosage: UNK
     Dates: start: 20190605

REACTIONS (1)
  - Venous thrombosis limb [Not Recovered/Not Resolved]

NARRATIVE: CASE EVENT DATE: 20190627
